FAERS Safety Report 4766973-2 (Version None)
Quarter: 2005Q3

REPORT INFORMATION
  Report Type: 
  Country: None (occurrence: None)
  Receive Date: 20050908
  Receipt Date: 20050825
  Transmission Date: 20060218
  Serious: Yes (Other)
  Sender: FDA-Public Use
  Company Number: 2005JP001684

PATIENT
  Sex: Male

DRUGS (1)
  1. PROTOPIC [Suspect]
     Dates: start: 19960101

REACTIONS (1)
  - LYMPHOMA [None]
